FAERS Safety Report 5973237-8 (Version None)
Quarter: 2008Q4

REPORT INFORMATION
  Report Type: 
  Country: None (occurrence: None)
  Receive Date: 20081201
  Receipt Date: 20081125
  Transmission Date: 20090506
  Serious: Yes (Other)
  Sender: FDA-Public Use
  Company Number: JP-ASTRAZENECA-2008AP09204

PATIENT
  Age: 41 Year
  Sex: Female

DRUGS (2)
  1. ZOLADEX [Suspect]
     Indication: BREAST CANCER
     Route: 058
     Dates: start: 20080820, end: 20081022
  2. NOLVADEX [Concomitant]
     Indication: BREAST CANCER
     Route: 048
     Dates: start: 20080820, end: 20081022

REACTIONS (1)
  - ERYTHEMA MULTIFORME [None]
